FAERS Safety Report 26088529 (Version 1)
Quarter: 2025Q4

REPORT INFORMATION
  Report Type: Report from Study
  Country: IN (occurrence: IN)
  Receive Date: 20251125
  Receipt Date: 20251125
  Transmission Date: 20260118
  Serious: Yes (Death, Other)
  Sender: DAIICHI
  Company Number: IN-AstraZeneca-CH-00999017A

PATIENT
  Age: 55 Year
  Sex: Male
  Weight: 52 kg

DRUGS (1)
  1. ENHERTU [Suspect]
     Active Substance: FAM-TRASTUZUMAB DERUXTECAN-NXKI
     Indication: Breast cancer metastatic
     Dosage: 300 MG, ONCE EVERY 3 WK
     Route: 041

REACTIONS (1)
  - Death [Fatal]

NARRATIVE: CASE EVENT DATE: 20251110
